FAERS Safety Report 8843155 (Version 3)
Quarter: 2013Q3

REPORT INFORMATION
  Report Type: Spontaneous
  Country: US (occurrence: US)
  Receive Date: 20121016
  Receipt Date: 20130708
  Transmission Date: 20140515
  Serious: Yes (Hospitalization, Other)
  Sender: FDA-Public Use
  Company Number: US-PFIZER INC-2012254401

PATIENT
  Age: 78 Year
  Sex: Female
  Weight: 54.88 kg

DRUGS (11)
  1. LYRICA [Suspect]
     Indication: DIABETIC NEUROPATHY
     Dosage: 25 MG, UNK
     Route: 048
  2. LYRICA [Suspect]
     Dosage: 75 MG, 3X/DAY
  3. TOVIAZ [Suspect]
     Indication: URINARY INCONTINENCE
     Dosage: 8 MG, 1X/DAY
     Route: 048
     Dates: start: 2012
  4. TOVIAZ [Suspect]
     Indication: BLADDER DISORDER
  5. SYNTHROID [Concomitant]
     Indication: POSTOPERATIVE CARE
     Dosage: UNK
  6. ARTHROTEC [Concomitant]
     Indication: ARTHRITIS
     Dosage: UNK
  7. BONIVA [Concomitant]
     Dosage: UNK
  8. ENALAPRIL [Concomitant]
     Dosage: UNK
  9. JANUVIA [Concomitant]
     Dosage: UNK
  10. PLAVIX [Concomitant]
     Dosage: UNK
  11. PRAVASTATIN [Concomitant]
     Dosage: UNK

REACTIONS (8)
  - Malaise [Recovered/Resolved]
  - Localised infection [Recovered/Resolved]
  - Joint swelling [Recovered/Resolved]
  - Gait disturbance [Recovered/Resolved]
  - Joint range of motion decreased [Recovered/Resolved]
  - Diabetic neuropathy [Unknown]
  - Dry mouth [Not Recovered/Not Resolved]
  - Drug ineffective [Unknown]
